FAERS Safety Report 12365217 (Version 1)
Quarter: 2016Q2

REPORT INFORMATION
  Report Type: Spontaneous
  Country: US (occurrence: US)
  Receive Date: 20160512
  Receipt Date: 20160512
  Transmission Date: 20160815
  Serious: No
  Sender: FDA-Public Use
  Company Number: US-JAZZ-2015-US-013570

PATIENT
  Age: 61 Year
  Sex: Female

DRUGS (25)
  1. XYREM [Suspect]
     Active Substance: SODIUM OXYBATE
     Dosage: DOSE ADJUSTMENTS
     Route: 048
  2. XYREM [Suspect]
     Active Substance: SODIUM OXYBATE
     Dosage: UNK
  3. METHOCARBAMOL. [Concomitant]
     Active Substance: METHOCARBAMOL
     Indication: PRODUCT USED FOR UNKNOWN INDICATION
     Dosage: UNK
     Dates: start: 20150909
  4. CORGARD [Concomitant]
     Active Substance: NADOLOL
     Indication: CARDIAC DISORDER
  5. BENAZEPRIL HCL [Concomitant]
     Active Substance: BENAZEPRIL HYDROCHLORIDE
     Indication: BLOOD PRESSURE MEASUREMENT
     Dosage: UNK
     Route: 048
     Dates: start: 20141105
  6. XYREM [Suspect]
     Active Substance: SODIUM OXYBATE
     Dosage: 2.25 G, SECOND DOSE
     Route: 048
     Dates: start: 2015
  7. ESTRACE [Concomitant]
     Active Substance: ESTRADIOL
     Indication: OSTEOPOROSIS
     Dosage: UNK
     Dates: start: 20141105
  8. MAGNESIUM CARBONATE [Concomitant]
     Active Substance: MAGNESIUM CARBONATE
     Indication: SUPPLEMENTATION THERAPY
     Dosage: UNK
     Dates: start: 20141105
  9. XYREM [Suspect]
     Active Substance: SODIUM OXYBATE
     Indication: NARCOLEPSY
     Dosage: 2.25 G, BID
     Route: 048
     Dates: start: 200308, end: 2003
  10. XYREM [Suspect]
     Active Substance: SODIUM OXYBATE
     Dosage: 1.5 G, FIRST DOSE
     Route: 048
     Dates: start: 2015
  11. ADDERALL [Concomitant]
     Active Substance: AMPHETAMINE ASPARTATE\AMPHETAMINE SULFATE\DEXTROAMPHETAMINE SACCHARATE\DEXTROAMPHETAMINE SULFATE
     Indication: NARCOLEPSY
     Dosage: UNK
     Dates: start: 20141105
  12. CALCIUM +D [Concomitant]
     Active Substance: CALCIUM\VITAMIN D
     Indication: OSTEOPOROSIS
  13. MULTIVITAMINES WITH IRON [Concomitant]
     Indication: SUPPLEMENTATION THERAPY
     Dosage: UNK
  14. CORGARD [Concomitant]
     Active Substance: NADOLOL
     Indication: PRODUCT USED FOR UNKNOWN INDICATION
     Dosage: UNK
     Dates: start: 20150601
  15. RESTASIS [Concomitant]
     Active Substance: CYCLOSPORINE
     Indication: DRY EYE
     Dosage: UNK, ONCE OR TWICE DAILY
     Dates: start: 20140101
  16. NASACORT [Concomitant]
     Active Substance: TRIAMCINOLONE ACETONIDE
     Indication: HYPERSENSITIVITY
     Dosage: UNK
  17. TYLENOL WITH CODEINE [Concomitant]
     Active Substance: ACETAMINOPHEN\CODEINE PHOSPHATE
     Indication: PRODUCT USED FOR UNKNOWN INDICATION
     Dosage: UNK
     Dates: start: 20150909
  18. CLARITIN [Concomitant]
     Active Substance: LORATADINE
     Indication: HYPERSENSITIVITY
     Dosage: UNK
     Dates: start: 20141105
  19. ESTRACE [Concomitant]
     Active Substance: ESTRADIOL
     Indication: ILL-DEFINED DISORDER
  20. FELDENE [Concomitant]
     Active Substance: PIROXICAM
     Indication: PRODUCT USED FOR UNKNOWN INDICATION
     Dosage: UNK
     Dates: start: 20141105
  21. FISH OIL CONCENTRATE [Concomitant]
     Indication: PRODUCT USED FOR UNKNOWN INDICATION
     Dosage: UNK
     Dates: start: 20141105
  22. XYREM [Suspect]
     Active Substance: SODIUM OXYBATE
     Dosage: 2.25 G, BID
     Route: 048
     Dates: start: 200507, end: 200509
  23. CALCIUM +D [Concomitant]
     Active Substance: CALCIUM\VITAMIN D
     Indication: SUPPLEMENTATION THERAPY
     Dosage: UNK
     Dates: start: 20141105
  24. CORGARD [Concomitant]
     Active Substance: NADOLOL
     Indication: BLOOD PRESSURE MEASUREMENT
  25. LASIX [Concomitant]
     Active Substance: FUROSEMIDE
     Indication: SWELLING
     Dosage: UNK
     Dates: start: 20150601

REACTIONS (7)
  - Joint dislocation [Unknown]
  - Spinal column stenosis [Unknown]
  - Weight decreased [Unknown]
  - Joint dislocation [Recovering/Resolving]
  - Fall [Recovered/Resolved]
  - Ligament rupture [Unknown]
  - Pain [Recovered/Resolved]

NARRATIVE: CASE EVENT DATE: 2014
